FAERS Safety Report 23769011 (Version 5)
Quarter: 2024Q4

REPORT INFORMATION
  Report Type: Report from Study
  Country: JP (occurrence: JP)
  Receive Date: 20240422
  Receipt Date: 20241023
  Transmission Date: 20250114
  Serious: Yes (Death, Life-Threatening, Hospitalization)
  Sender: SHIONOGI
  Company Number: JP-shionogi-202403148_FTR_P_1

PATIENT
  Age: 32 Year
  Sex: Male
  Weight: 65.3 kg

DRUGS (93)
  1. CEFIDEROCOL [Suspect]
     Active Substance: CEFIDEROCOL
     Indication: Enterocolitis
     Route: 041
     Dates: start: 20240406, end: 20240406
  2. CEFIDEROCOL [Suspect]
     Active Substance: CEFIDEROCOL
     Indication: Febrile neutropenia
     Route: 041
     Dates: start: 20240407, end: 20240416
  3. CEFIDEROCOL [Suspect]
     Active Substance: CEFIDEROCOL
     Indication: Sepsis
  4. FLAGYL [Suspect]
     Active Substance: METRONIDAZOLE\METRONIDAZOLE HYDROCHLORIDE
     Indication: Product used for unknown indication
     Route: 048
     Dates: start: 20240401, end: 20240412
  5. URSODIOL [Concomitant]
     Active Substance: URSODIOL
     Indication: Product used for unknown indication
     Route: 065
     Dates: start: 20240406, end: 20240410
  6. UBIDECARENONE [Concomitant]
     Active Substance: UBIDECARENONE
     Indication: Product used for unknown indication
     Route: 065
     Dates: start: 20240406, end: 20240410
  7. TOCOPHEROL [Concomitant]
     Active Substance: TOCOPHEROL
     Indication: Product used for unknown indication
     Route: 065
     Dates: start: 20240406, end: 20240410
  8. ESOMEPRAZOLE [Concomitant]
     Active Substance: ESOMEPRAZOLE
     Indication: Product used for unknown indication
     Route: 065
     Dates: start: 20240406, end: 20240410
  9. IRSOGLADINE MALEATE [Concomitant]
     Active Substance: IRSOGLADINE MALEATE
     Indication: Product used for unknown indication
     Route: 065
     Dates: start: 20240406, end: 20240410
  10. MIYA-BM [Concomitant]
     Active Substance: CLOSTRIDIUM BUTYRICUM SPORES STRAIN M-55
     Indication: Product used for unknown indication
     Route: 065
     Dates: start: 20240406, end: 20240410
  11. PENTASA [Concomitant]
     Active Substance: MESALAMINE
     Indication: Product used for unknown indication
     Route: 065
     Dates: start: 20240406, end: 20240410
  12. DEFERASIROX [Concomitant]
     Active Substance: DEFERASIROX
     Indication: Product used for unknown indication
     Route: 065
     Dates: start: 20240406, end: 20240410
  13. LEVOFLOXACIN HEMIHYDRATE [Concomitant]
     Active Substance: LEVOFLOXACIN
     Indication: Febrile neutropenia
     Route: 048
     Dates: start: 20240329, end: 20240410
  14. LEVOFLOXACIN HEMIHYDRATE [Concomitant]
     Active Substance: LEVOFLOXACIN
     Indication: Enterocolitis
  15. LEVOFLOXACIN HEMIHYDRATE [Concomitant]
     Active Substance: LEVOFLOXACIN
     Indication: Sepsis
  16. CALONAL [Concomitant]
     Active Substance: ACETAMINOPHEN
     Indication: Product used for unknown indication
     Dosage: AT THE TIME OF FEVER, 06-APR-2024, 11-APR-2024
     Route: 065
     Dates: start: 20240406, end: 20240411
  17. VANCOMYCIN HYDROCHLORIDE [Concomitant]
     Active Substance: VANCOMYCIN HYDROCHLORIDE
     Indication: Product used for unknown indication
     Route: 065
     Dates: start: 20240412, end: 20240413
  18. WHITE PETROLATUM [Concomitant]
     Active Substance: PETROLATUM
     Indication: Product used for unknown indication
     Dosage: QS
     Route: 061
     Dates: start: 20240412, end: 20240412
  19. ZINC OXIDE [Concomitant]
     Active Substance: ZINC OXIDE
     Indication: Product used for unknown indication
     Dosage: QS
     Route: 061
     Dates: start: 20240413, end: 20240414
  20. BETAMETHASONE DIPROPIONATE [Concomitant]
     Active Substance: BETAMETHASONE DIPROPIONATE
     Indication: Product used for unknown indication
     Dosage: TWICE DAILY
     Route: 061
     Dates: start: 20240414, end: 20240414
  21. FILGRASTIM [Concomitant]
     Active Substance: FILGRASTIM
     Indication: Product used for unknown indication
     Route: 058
     Dates: start: 20240406, end: 20240407
  22. FILGRASTIM [Concomitant]
     Active Substance: FILGRASTIM
     Route: 058
     Dates: start: 20240408, end: 20240416
  23. HEPARIN SODIUM [Concomitant]
     Active Substance: HEPARIN SODIUM
     Indication: Product used for unknown indication
     Route: 042
     Dates: start: 20240406, end: 20240406
  24. HEPARIN SODIUM [Concomitant]
     Active Substance: HEPARIN SODIUM
     Route: 042
     Dates: start: 20240407, end: 20240407
  25. HEPARIN SODIUM [Concomitant]
     Active Substance: HEPARIN SODIUM
     Route: 042
     Dates: start: 20240408, end: 20240408
  26. HEPARIN SODIUM [Concomitant]
     Active Substance: HEPARIN SODIUM
     Route: 042
     Dates: start: 20240415, end: 20240415
  27. ISOTONIC SODIUM CHLORIDE SOLUTION [Concomitant]
     Active Substance: SODIUM CHLORIDE
     Indication: Product used for unknown indication
     Dosage: TOTAL DOSAGE: 8349 ML
     Route: 042
     Dates: start: 20240406, end: 20240416
  28. ISOTONIC SODIUM CHLORIDE SOLUTION [Concomitant]
     Active Substance: SODIUM CHLORIDE
     Indication: Septic shock
     Dosage: TOTAL DOSAGE: 1565 ML
     Route: 041
     Dates: start: 20240406, end: 20240416
  29. ISOTONIC SODIUM CHLORIDE SOLUTION [Concomitant]
     Active Substance: SODIUM CHLORIDE
     Dosage: TOTAL DOSAGE: 1400 ML, CENTRAL VENOUS CATHETER
     Route: 050
     Dates: start: 20240408, end: 20240416
  30. ISOTONIC SODIUM CHLORIDE SOLUTION [Concomitant]
     Active Substance: SODIUM CHLORIDE
     Route: 041
     Dates: start: 20240408, end: 20240408
  31. ISOTONIC SODIUM CHLORIDE SOLUTION [Concomitant]
     Active Substance: SODIUM CHLORIDE
     Route: 042
     Dates: start: 20240415, end: 20240416
  32. ISOTONIC SODIUM CHLORIDE SOLUTION [Concomitant]
     Active Substance: SODIUM CHLORIDE
     Dosage: INFUSION RATE AS INSTRUCTED
     Route: 042
     Dates: start: 20240415, end: 20240416
  33. ISOTONIC SODIUM CHLORIDE SOLUTION [Concomitant]
     Active Substance: SODIUM CHLORIDE
     Route: 041
     Dates: start: 20240415, end: 20240415
  34. EXACIN [ISEPAMICIN SULFATE] [Concomitant]
     Indication: Febrile neutropenia
     Route: 041
     Dates: start: 20240403, end: 20240408
  35. EXACIN [ISEPAMICIN SULFATE] [Concomitant]
     Indication: Enterocolitis
  36. EXACIN [ISEPAMICIN SULFATE] [Concomitant]
     Indication: Sepsis
  37. HYDROCORTISONE SODIUM SUCCINATE [Concomitant]
     Active Substance: HYDROCORTISONE SODIUM SUCCINATE
     Indication: Product used for unknown indication
     Dosage: TOTAL DOSAGE: 2200 MG
     Route: 042
     Dates: start: 20240406, end: 20240415
  38. HYDROCORTISONE SODIUM SUCCINATE [Concomitant]
     Active Substance: HYDROCORTISONE SODIUM SUCCINATE
     Dosage: 200 MG, QD
     Route: 042
     Dates: start: 20240415, end: 20240416
  39. ACETAMINOPHEN [Concomitant]
     Active Substance: ACETAMINOPHEN
     Indication: Product used for unknown indication
     Dosage: TOTAL DOSAGE: 17000 MG
     Route: 041
     Dates: start: 20240406, end: 20240415
  40. POLARAMINE [Concomitant]
     Active Substance: DEXCHLORPHENIRAMINE MALEATE
     Indication: Prophylaxis
     Route: 042
     Dates: start: 20240407, end: 20240414
  41. POLARAMINE [Concomitant]
     Active Substance: DEXCHLORPHENIRAMINE MALEATE
     Route: 041
     Dates: start: 20240415, end: 20240415
  42. POLARAMINE [Concomitant]
     Active Substance: DEXCHLORPHENIRAMINE MALEATE
     Route: 041
     Dates: start: 20240416, end: 20240416
  43. AMMONIUM GLYCYRRHIZATE\CYSTEINE HYDROCHLORIDE\GLYCINE [Concomitant]
     Active Substance: AMMONIUM GLYCYRRHIZATE\CYSTEINE HYDROCHLORIDE\GLYCINE
     Indication: Prophylaxis
     Route: 042
     Dates: start: 20240407, end: 20240414
  44. AMMONIUM GLYCYRRHIZATE\CYSTEINE HYDROCHLORIDE\GLYCINE [Concomitant]
     Active Substance: AMMONIUM GLYCYRRHIZATE\CYSTEINE HYDROCHLORIDE\GLYCINE
     Indication: Product used for unknown indication
     Route: 042
     Dates: start: 20240415, end: 20240415
  45. AMMONIUM GLYCYRRHIZATE\CYSTEINE HYDROCHLORIDE\GLYCINE [Concomitant]
     Active Substance: AMMONIUM GLYCYRRHIZATE\CYSTEINE HYDROCHLORIDE\GLYCINE
     Route: 042
     Dates: start: 20240416, end: 20240416
  46. DAPTOMYCIN [Concomitant]
     Active Substance: DAPTOMYCIN
     Indication: Prophylaxis
     Route: 041
     Dates: start: 20240407, end: 20240416
  47. OMEPRAZOLE SODIUM [Concomitant]
     Active Substance: OMEPRAZOLE SODIUM
     Indication: Product used for unknown indication
     Route: 042
     Dates: start: 20240408, end: 20240408
  48. OMEPRAZOLE SODIUM [Concomitant]
     Active Substance: OMEPRAZOLE SODIUM
     Route: 042
     Dates: start: 20240409, end: 20240416
  49. AMINO ACIDS\DEXTROSE\ELECTROLYTES NOS\VITAMINS [Concomitant]
     Active Substance: AMINO ACIDS\DEXTROSE\ELECTROLYTES NOS\VITAMINS
     Indication: Product used for unknown indication
     Route: 041
     Dates: start: 20240409, end: 20240409
  50. ELNEOPA NF NO.1 [Concomitant]
     Indication: Product used for unknown indication
     Dosage: CENTRAL VENOUS CATHETER
     Route: 050
     Dates: start: 20240410, end: 20240412
  51. HUMULIN R [Concomitant]
     Active Substance: INSULIN HUMAN
     Indication: Product used for unknown indication
     Dosage: CENTRAL VENOUS CATHETER
     Route: 050
     Dates: start: 20240410, end: 20240412
  52. HUMULIN R [Concomitant]
     Active Substance: INSULIN HUMAN
     Dosage: CENTRAL VENOUS CATHETER
     Route: 050
     Dates: start: 20240413, end: 20240413
  53. HUMULIN R [Concomitant]
     Active Substance: INSULIN HUMAN
     Dosage: CENTRAL VENOUS CATHETER
     Route: 050
     Dates: start: 20240414, end: 20240415
  54. WATER FOR INJECTION [Concomitant]
     Active Substance: WATER
     Indication: Product used for unknown indication
     Route: 050
     Dates: start: 20240412, end: 20240412
  55. WATER FOR INJECTION [Concomitant]
     Active Substance: WATER
     Route: 050
     Dates: start: 20240415, end: 20240416
  56. METRONIDAZOLE [Concomitant]
     Active Substance: METRONIDAZOLE
     Indication: Product used for unknown indication
     Dosage: TOTAL DOSAGE: 4750 MG
     Route: 041
     Dates: start: 20240412, end: 20240416
  57. AMINO ACIDS\DEXTROSE\ELECTROLYTES NOS\MINERALS\VITAMINS [Concomitant]
     Active Substance: AMINO ACIDS\DEXTROSE\ELECTROLYTES NOS\MINERALS\VITAMINS
     Indication: Product used for unknown indication
     Dosage: CENTRAL VENOUS CATHETER
     Route: 050
     Dates: start: 20240413, end: 20240413
  58. AMINO ACIDS\DEXTROSE\ELECTROLYTES NOS\MINERALS\VITAMINS [Concomitant]
     Active Substance: AMINO ACIDS\DEXTROSE\ELECTROLYTES NOS\MINERALS\VITAMINS
     Dosage: CENTRAL VENOUS CATHETER
     Route: 050
     Dates: start: 20240414, end: 20240415
  59. MICAFUNGIN SODIUM [Concomitant]
     Active Substance: MICAFUNGIN SODIUM
     Indication: Prophylaxis
     Route: 041
     Dates: start: 20240413, end: 20240416
  60. REMIFENTANIL HYDROCHLORIDE [Concomitant]
     Active Substance: REMIFENTANIL HYDROCHLORIDE
     Indication: Prophylaxis
     Route: 042
     Dates: start: 20240415, end: 20240416
  61. DEXMEDETOMIDINE [Concomitant]
     Active Substance: DEXMEDETOMIDINE
     Indication: Prophylaxis
     Route: 042
     Dates: start: 20240415, end: 20240415
  62. DEXMEDETOMIDINE [Concomitant]
     Active Substance: DEXMEDETOMIDINE
     Route: 042
     Dates: start: 20240416, end: 20240416
  63. CALCIUM CHLORIDE\MAGNESIUM CHLORIDE\POTASSIUM CHLORIDE\SODIUM ACETATE\ [Concomitant]
     Active Substance: CALCIUM CHLORIDE\MAGNESIUM CHLORIDE\POTASSIUM CHLORIDE\SODIUM ACETATE\SODIUM CHLORIDE
     Indication: Product used for unknown indication
     Route: 041
     Dates: start: 20240415, end: 20240415
  64. MIDAZOLAM [Concomitant]
     Active Substance: MIDAZOLAM
     Indication: Prophylaxis
     Route: 042
     Dates: start: 20240415, end: 20240415
  65. ROCURONIUM BROMIDE [Concomitant]
     Active Substance: ROCURONIUM BROMIDE
     Indication: Prophylaxis
     Route: 042
     Dates: start: 20240415, end: 20240415
  66. HEPARIN SODIUM [Concomitant]
     Active Substance: HEPARIN SODIUM
     Indication: Product used for unknown indication
     Route: 042
     Dates: start: 20240415, end: 20240415
  67. XYLOCAINE [Concomitant]
     Active Substance: LIDOCAINE HYDROCHLORIDE
     Indication: Product used for unknown indication
     Route: 058
     Dates: start: 20240415, end: 20240415
  68. DEXTROSE [Concomitant]
     Active Substance: DEXTROSE MONOHYDRATE
     Indication: Product used for unknown indication
     Route: 041
     Dates: start: 20240415, end: 20240415
  69. DEXTROSE [Concomitant]
     Active Substance: DEXTROSE MONOHYDRATE
     Indication: Hypoglycaemia
     Route: 042
     Dates: start: 20240415, end: 20240415
  70. DEXTROSE [Concomitant]
     Active Substance: DEXTROSE MONOHYDRATE
     Route: 042
     Dates: start: 20240416, end: 20240416
  71. SOLITA T NO. 1 [Concomitant]
     Indication: Product used for unknown indication
     Route: 041
     Dates: start: 20240416, end: 20240416
  72. NOREPINEPHRINE BITARTRATE [Concomitant]
     Active Substance: NOREPINEPHRINE BITARTRATE
     Indication: Septic shock
     Dosage: TOTAL DOSAGE: 106 MG
     Route: 041
     Dates: start: 20240407, end: 20240416
  73. KCL [Concomitant]
     Active Substance: POTASSIUM CHLORIDE
     Indication: Hypokalaemia
     Route: 041
     Dates: start: 20240408, end: 20240408
  74. KCL [Concomitant]
     Active Substance: POTASSIUM CHLORIDE
     Route: 041
     Dates: start: 20240409, end: 20240411
  75. KCL [Concomitant]
     Active Substance: POTASSIUM CHLORIDE
     Dosage: CENTRAL VENOUS CATHETER
     Route: 050
     Dates: start: 20240410, end: 20240412
  76. KCL [Concomitant]
     Active Substance: POTASSIUM CHLORIDE
     Route: 041
     Dates: start: 20240412, end: 20240413
  77. KCL [Concomitant]
     Active Substance: POTASSIUM CHLORIDE
     Dosage: CENTRAL VENOUS CATHETER, ASEPTIC
     Route: 050
     Dates: start: 20240413, end: 20240413
  78. KCL [Concomitant]
     Active Substance: POTASSIUM CHLORIDE
     Dosage: CENTRAL VENOUS CATHETER, ASEPTIC
     Route: 050
     Dates: start: 20240414, end: 20240415
  79. MAGNESIUM SULFATE [Concomitant]
     Active Substance: MAGNESIUM SULFATE
     Indication: Hypomagnesaemia
     Route: 041
     Dates: start: 20240408, end: 20240408
  80. MAGNESIUM SULFATE [Concomitant]
     Active Substance: MAGNESIUM SULFATE
     Route: 041
     Dates: start: 20240410, end: 20240410
  81. DIBASIC POTASSIUM PHOSPHATE [Concomitant]
     Active Substance: DIBASIC POTASSIUM PHOSPHATE
     Indication: Hypophosphataemia
     Dosage: CENTRAL VENOUS CATHETER, ASEPTIC
     Route: 050
     Dates: start: 20240413, end: 20240414
  82. DIBASIC POTASSIUM PHOSPHATE [Concomitant]
     Active Substance: DIBASIC POTASSIUM PHOSPHATE
     Dosage: CENTRAL VENOUS CATHETER, ASEPTIC
     Route: 050
     Dates: start: 20240415, end: 20240415
  83. ANTITHROMBIN III HUMAN [Concomitant]
     Active Substance: ANTITHROMBIN III HUMAN
     Indication: Disseminated intravascular coagulation
     Route: 041
     Dates: start: 20240415, end: 20240416
  84. PITRESSIN [Concomitant]
     Active Substance: VASOPRESSIN
     Indication: Septic shock
     Route: 042
     Dates: start: 20240415, end: 20240416
  85. EPINEPHRINE [Concomitant]
     Active Substance: EPINEPHRINE
     Indication: Septic shock
     Route: 042
     Dates: start: 20240415, end: 20240415
  86. EPINEPHRINE [Concomitant]
     Active Substance: EPINEPHRINE
     Route: 042
     Dates: start: 20240416, end: 20240416
  87. MEYLON [Concomitant]
     Active Substance: SODIUM BICARBONATE
     Indication: Metabolic acidosis
     Route: 042
     Dates: start: 20240415, end: 20240415
  88. MEYLON [Concomitant]
     Active Substance: SODIUM BICARBONATE
     Route: 041
     Dates: start: 20240415, end: 20240415
  89. MEYLON [Concomitant]
     Active Substance: SODIUM BICARBONATE
     Route: 041
     Dates: start: 20240416, end: 20240416
  90. CALCIUM GLUCONATE [Concomitant]
     Active Substance: CALCIUM GLUCONATE
     Indication: Hypocalcaemia
     Route: 042
     Dates: start: 20240415, end: 20240415
  91. NAFAMOSTAT MESYLATE [Concomitant]
     Active Substance: NAFAMOSTAT MESYLATE
     Indication: Disseminated intravascular coagulation
     Route: 042
     Dates: start: 20240415, end: 20240415
  92. NAFAMOSTAT MESYLATE [Concomitant]
     Active Substance: NAFAMOSTAT MESYLATE
     Route: 042
     Dates: start: 20240416, end: 20240416
  93. SUBLOOD-BSG [Concomitant]
     Indication: Acute kidney injury
     Route: 042
     Dates: start: 20240415, end: 20240415

REACTIONS (11)
  - Septic shock [Fatal]
  - Disseminated intravascular coagulation [Not Recovered/Not Resolved]
  - Acute respiratory failure [Not Recovered/Not Resolved]
  - Acute kidney injury [Not Recovered/Not Resolved]
  - Metabolic acidosis [Not Recovered/Not Resolved]
  - Hypoglycaemia [Not Recovered/Not Resolved]
  - Hypokalaemia [Not Recovered/Not Resolved]
  - Hypophosphataemia [Not Recovered/Not Resolved]
  - Hypocalcaemia [Not Recovered/Not Resolved]
  - Hypomagnesaemia [Recovered/Resolved]
  - Hypermagnesaemia [Not Recovered/Not Resolved]

NARRATIVE: CASE EVENT DATE: 20240407
